FAERS Safety Report 13751904 (Version 1)
Quarter: 2017Q3

REPORT INFORMATION
  Report Type: Spontaneous
  Country: US (occurrence: US)
  Receive Date: 20170713
  Receipt Date: 20170713
  Transmission Date: 20171127
  Serious: No
  Sender: FDA-Public Use
  Company Number: US-ASTELLAS-2017US000537

PATIENT
  Age: 83 Year
  Sex: Male

DRUGS (3)
  1. MYRBETRIQ [Suspect]
     Active Substance: MIRABEGRON
     Indication: HYPERTONIC BLADDER
     Route: 048
     Dates: start: 201605, end: 20161121
  2. MYRBETRIQ [Suspect]
     Active Substance: MIRABEGRON
     Dosage: 100 MG (TWO 50MG TABLETS), ONCE DAILY
     Route: 048
     Dates: start: 20161126, end: 20170110
  3. MYRBETRIQ [Suspect]
     Active Substance: MIRABEGRON
     Route: 048
     Dates: start: 20161121, end: 20161126

REACTIONS (6)
  - Irritability [Recovering/Resolving]
  - Confusional state [Recovering/Resolving]
  - Agitation [Recovering/Resolving]
  - Incontinence [Recovered/Resolved]
  - Overdose [Unknown]
  - Dehydration [Recovered/Resolved]

NARRATIVE: CASE EVENT DATE: 201612
